FAERS Safety Report 7118932-2 (Version None)
Quarter: 2010Q4

REPORT INFORMATION
  Report Type: 
  Country: None (occurrence: None)
  Receive Date: 20101123
  Receipt Date: 20101004
  Transmission Date: 20110411
  Serious: No
  Sender: FDA-Public Use
  Company Number: US-KINGPHARMUSA00001-K201001231

PATIENT
  Sex: Female

DRUGS (4)
  1. FLECTOR [Suspect]
     Indication: BACK PAIN
     Dosage: 1 PATCH, 8H QD
     Route: 061
     Dates: start: 20100929, end: 20101001
  2. FLECTOR [Suspect]
     Indication: INTERVERTEBRAL DISC PROTRUSION
  3. PERCOCET [Concomitant]
     Indication: BACK PAIN
     Dosage: UNK, Q6H, PRN
  4. MOTRIN [Concomitant]
     Indication: BACK PAIN
     Dosage: UNK, Q6H, PRN

REACTIONS (1)
  - SKIN EXFOLIATION [None]
